FAERS Safety Report 17691095 (Version 1)
Quarter: 2020Q2

REPORT INFORMATION
  Report Type: Spontaneous
  Country: CH (occurrence: CH)
  Receive Date: 20200422
  Receipt Date: 20200422
  Transmission Date: 20200714
  Serious: Yes (Hospitalization)
  Sender: FDA-Public Use
  Company Number: CH-CHEPLA-C20201303

PATIENT
  Age: 41 Year
  Sex: Female

DRUGS (8)
  1. ETOPOPHOS [Suspect]
     Active Substance: ETOPOSIDE PHOSPHATE
     Indication: HODGKIN^S DISEASE
     Dosage: DOSAGE NOT KNOWN.
     Route: 042
     Dates: start: 20200303
  2. ADRIBLASTIN [Suspect]
     Active Substance: DOXORUBICIN HYDROCHLORIDE
     Indication: HODGKIN^S DISEASE
     Dosage: DOSAGE NOT KNOWN.
     Route: 042
     Dates: start: 20200303
  3. PANTOZOL [Concomitant]
     Active Substance: PANTOPRAZOLE SODIUM
     Indication: GASTROOESOPHAGEAL REFLUX DISEASE
     Dosage: EXACT DATE OF START OF THERAPY NOT KNOWN. 1-0-0-0
     Route: 048
     Dates: start: 202003
  4. ENDOXAN [Suspect]
     Active Substance: CYCLOPHOSPHAMIDE
     Indication: HODGKIN^S DISEASE
     Dosage: DOSAGE NOT KNOWN
     Route: 042
     Dates: start: 20200303
  5. PREDNISON STREULI [Suspect]
     Active Substance: PREDNISONE
     Dosage: 1-0-0-0
     Route: 048
     Dates: start: 20200324, end: 20200325
  6. BACTRIM [Concomitant]
     Active Substance: SULFAMETHOXAZOLE\TRIMETHOPRIM
     Dosage: EXACT DATE OF START OF THERAPY NOT KNOWN.
     Route: 048
     Dates: start: 202003
  7. VALACICLOVIR SANDOZ [Concomitant]
     Active Substance: VALACYCLOVIR HYDROCHLORIDE
     Dosage: EXACT DATE OF START OF THERAPY NOT KNOWN. 1-0-1-0
     Route: 048
     Dates: start: 202003
  8. NATULAN [Suspect]
     Active Substance: PROCARBAZINE HYDROCHLORIDE
     Indication: HODGKIN^S DISEASE
     Dosage: DOSAGE NOT KNOWN
     Route: 048
     Dates: start: 20200303

REACTIONS (6)
  - Tachycardia [Unknown]
  - Type IV hypersensitivity reaction [Recovered/Resolved]
  - Rash maculo-papular [Recovered/Resolved]
  - Pyrexia [Recovered/Resolved]
  - Systemic inflammatory response syndrome [Recovered/Resolved]
  - Neutrophilia [Recovered/Resolved]

NARRATIVE: CASE EVENT DATE: 20200324
